FAERS Safety Report 8760651 (Version 2)
Quarter: 2013Q1

REPORT INFORMATION
  Report Type: Spontaneous
  Country: DE (occurrence: DE)
  Receive Date: 20120830
  Receipt Date: 20130107
  Transmission Date: 20140127
  Serious: Yes (Other)
  Sender: FDA-Public Use
  Company Number: DE-UCBSA-064429

PATIENT
  Age: 50 Year
  Sex: Male

DRUGS (1)
  1. KEPPRA [Suspect]
     Dosage: DAILY DOSE: 3000 MG

REACTIONS (1)
  - Electrocardiogram QT prolonged [Recovered/Resolved]
